FAERS Safety Report 5146592-9 (Version None)
Quarter: 2006Q4

REPORT INFORMATION
  Report Type: 
  Country: None (occurrence: None)
  Receive Date: 20061109
  Receipt Date: 20061027
  Transmission Date: 20070319
  Serious: Yes (Hospitalization)
  Sender: FDA-Public Use
  Company Number: PHBS2006TR17048

PATIENT
  Age: 2 Year
  Sex: Male
  Weight: 12 kg

DRUGS (1)
  1. TEGRETOL [Suspect]
     Indication: ACCIDENTAL DRUG INTAKE BY CHILD
     Dosage: 2000 MG, ONCE/SINGLE
     Route: 048

REACTIONS (11)
  - COMA [None]
  - DRUG LEVEL INCREASED [None]
  - GASTRIC LAVAGE [None]
  - GRAND MAL CONVULSION [None]
  - INTUBATION [None]
  - LEUKOPENIA [None]
  - LOSS OF CONSCIOUSNESS [None]
  - MYDRIASIS [None]
  - NEUTROPENIA [None]
  - OVERDOSE [None]
  - RESPIRATORY ARREST [None]
